FAERS Safety Report 7996250-8 (Version None)
Quarter: 2011Q4

REPORT INFORMATION
  Report Type: 
  Country: None (occurrence: None)
  Receive Date: 20111220
  Receipt Date: 20111216
  Transmission Date: 20120403
  Serious: Yes (Other)
  Sender: FDA-Public Use
  Company Number: FR-ABBOTT-11P-056-0884203-00

PATIENT
  Age: 64 Year
  Sex: Female

DRUGS (3)
  1. TANAKAN [Concomitant]
     Indication: ANGIOPATHY
  2. CREON [Suspect]
     Indication: MALABSORPTION
     Dosage: 4 CAPSULES, ONCE
     Route: 048
     Dates: start: 20111214
  3. BONIVA [Concomitant]
     Indication: OSTEOPOROSIS

REACTIONS (2)
  - OFF LABEL USE [None]
  - PRURITUS [None]
